FAERS Safety Report 4840399-5 (Version None)
Quarter: 2005Q4

REPORT INFORMATION
  Report Type: 
  Country: None (occurrence: None)
  Receive Date: 20051024
  Receipt Date: 20050725
  Transmission Date: 20060501
  Serious: Yes (Other)
  Sender: FDA-Public Use
  Company Number: USA-2005-0020833

PATIENT
  Age: 24 Year
  Sex: Male
  Weight: 74.8 kg

DRUGS (4)
  1. PALLADONE [Suspect]
     Dosage: 12 MG, SEE TEXT
  2. OXYCONTIN [Suspect]
  3. PERCOCET-5 [Suspect]
  4. HEROIN (DIAMORPHINE) [Suspect]

REACTIONS (1)
  - POLYSUBSTANCE ABUSE [None]
